FAERS Safety Report 18054494 (Version 4)
Quarter: 2020Q3

REPORT INFORMATION
  Report Type: Spontaneous
  Country: CN (occurrence: CN)
  Receive Date: 20200722
  Receipt Date: 20200830
  Transmission Date: 20201103
  Serious: Yes (Death, Life-Threatening, Other)
  Sender: FDA-Public Use
  Company Number: CN-SA-2020SA186459

PATIENT

DRUGS (3)
  1. ZOLPIDEM TARTRATE. [Suspect]
     Active Substance: ZOLPIDEM TARTRATE
     Dosage: UNK
     Route: 048
  2. POTASSIUM CHLORIDE. [Suspect]
     Active Substance: POTASSIUM CHLORIDE
     Dosage: UNK
     Route: 042
  3. PROPOFOL. [Suspect]
     Active Substance: PROPOFOL
     Dosage: UNK
     Route: 042

REACTIONS (16)
  - Pulmonary oedema [Fatal]
  - Acute respiratory failure [Fatal]
  - Circulatory collapse [Fatal]
  - Pancreatic disorder [Fatal]
  - Overdose [Fatal]
  - Pancreatic haemorrhage [Fatal]
  - Injection site reaction [Not Recovered/Not Resolved]
  - Pulmonary congestion [Fatal]
  - Myocardial oedema [Fatal]
  - Pulmonary haemorrhage [Fatal]
  - Myocardial haemorrhage [Fatal]
  - Gastric haemorrhage [Fatal]
  - Drug level above therapeutic [Fatal]
  - Skin injury [Not Recovered/Not Resolved]
  - Toxicity to various agents [Fatal]
  - Intentional product misuse [Fatal]
